FAERS Safety Report 5131001-6 (Version None)
Quarter: 2006Q4

REPORT INFORMATION
  Report Type: 
  Country: None (occurrence: None)
  Receive Date: 20061019
  Receipt Date: 20060901
  Transmission Date: 20070319
  Serious: Yes (Hospitalization)
  Sender: FDA-Public Use
  Company Number: JP-MERCK-0609USA00797

PATIENT
  Age: 39 Year
  Sex: Male
  Weight: 51 kg

DRUGS (1)
  1. PROPECIA [Suspect]
     Indication: MALE PATTERN BALDNESS
     Route: 048
     Dates: start: 20051214, end: 20060830

REACTIONS (2)
  - BILE DUCT STONE [None]
  - HEPATIC FUNCTION ABNORMAL [None]
